FAERS Safety Report 23779008 (Version 1)
Quarter: 2024Q2

REPORT INFORMATION
  Report Type: Spontaneous
  Country: FR (occurrence: FR)
  Receive Date: 20240424
  Receipt Date: 20240424
  Transmission Date: 20240716
  Serious: Yes (Other)
  Sender: FDA-Public Use
  Company Number: FR-Accord-418613

PATIENT
  Age: 30 Year
  Sex: Female

DRUGS (15)
  1. DOCETAXEL [Suspect]
     Active Substance: DOCETAXEL\DOCETAXEL ANHYDROUS
     Indication: Breast cancer metastatic
     Dosage: 3 CYCLES
     Route: 065
  2. PACLITAXEL [Suspect]
     Active Substance: PACLITAXEL
     Indication: Breast cancer metastatic
     Dosage: 90 MILLIGRAM/SQ. METER (D1, D8 AND D15)
     Route: 065
  3. PACLITAXEL [Suspect]
     Active Substance: PACLITAXEL
     Indication: Intraductal proliferative breast lesion
  4. PACLITAXEL [Suspect]
     Active Substance: PACLITAXEL
     Indication: Neoplasm malignant
  5. EPIRUBICIN [Suspect]
     Active Substance: EPIRUBICIN
     Indication: Breast cancer metastatic
     Dosage: 3 CYCLES
     Route: 065
  6. TALAZOPARIB [Suspect]
     Active Substance: TALAZOPARIB
     Indication: Breast cancer metastatic
     Dosage: 1 MILLIGRAM, QD
     Route: 065
  7. TALAZOPARIB [Suspect]
     Active Substance: TALAZOPARIB
     Dosage: 0.5 MILLIGRAM, QD
     Route: 065
  8. SACITUZUMAB GOVITECAN [Suspect]
     Active Substance: SACITUZUMAB GOVITECAN
     Indication: Breast cancer metastatic
     Dosage: 10 MILLIGRAM/KILOGRAM
     Route: 065
  9. ATEZOLIZUMAB [Suspect]
     Active Substance: ATEZOLIZUMAB
     Indication: Breast cancer metastatic
     Dosage: 840 MILLIGRAM, EVERY 15 DAYS (D1 AND D15)
     Route: 042
     Dates: end: 202101
  10. ATEZOLIZUMAB [Suspect]
     Active Substance: ATEZOLIZUMAB
     Indication: Intraductal proliferative breast lesion
  11. ATEZOLIZUMAB [Suspect]
     Active Substance: ATEZOLIZUMAB
     Indication: Neoplasm malignant
  12. CYCLOPHOSPHAMIDE [Suspect]
     Active Substance: CYCLOPHOSPHAMIDE
     Indication: Breast cancer metastatic
     Dosage: 3 CYCLES
     Route: 065
  13. DEXCHLORPHENIRAMINE MALEATE [Concomitant]
     Active Substance: DEXCHLORPHENIRAMINE MALEATE
     Dosage: 5 MILLIGRAM
     Route: 065
  14. ACETAMINOPHEN [Concomitant]
     Active Substance: ACETAMINOPHEN
     Dosage: 1000 MILLIGRAM
     Route: 065
  15. DEXAMETHASONE [Concomitant]
     Active Substance: DEXAMETHASONE
     Dosage: 8 MILLIGRAM
     Route: 065

REACTIONS (7)
  - Disease progression [Unknown]
  - Metastases to lung [Unknown]
  - Vertigo [Unknown]
  - Nausea [Unknown]
  - Abdominal pain [Unknown]
  - Asthenia [Unknown]
  - Dizziness [Unknown]
